FAERS Safety Report 12188739 (Version 7)
Quarter: 2018Q4

REPORT INFORMATION
  Report Type: Report from Study
  Country: US (occurrence: US)
  Receive Date: 20160317
  Receipt Date: 20181123
  Transmission Date: 20190204
  Serious: Yes (Hospitalization, Other)
  Sender: FDA-Public Use
  Company Number: PHHY2016US019346

PATIENT
  Age: 62 Year
  Sex: Female

DRUGS (1)
  1. GILENYA [Suspect]
     Active Substance: FINGOLIMOD HYDROCHLORIDE
     Indication: MULTIPLE SCLEROSIS
     Dosage: UNK, QD
     Route: 048

REACTIONS (23)
  - Lymphocyte count decreased [Unknown]
  - Depression [Unknown]
  - Fatigue [Unknown]
  - Hallucination [Unknown]
  - Hypoaesthesia [Unknown]
  - Quadriparesis [Unknown]
  - Alanine aminotransferase increased [Recovered/Resolved]
  - Swelling [Unknown]
  - Confusional state [Unknown]
  - Muscle spasticity [Unknown]
  - Feeling abnormal [Unknown]
  - Fall [Unknown]
  - Pruritus [Unknown]
  - Pain [Unknown]
  - Diplopia [Unknown]
  - Muscular weakness [Unknown]
  - Weight decreased [Unknown]
  - Occipital neuralgia [Recovered/Resolved]
  - Joint contracture [Unknown]
  - Memory impairment [Unknown]
  - Blood alkaline phosphatase increased [Recovered/Resolved]
  - Peripheral swelling [Unknown]
  - Disturbance in attention [Unknown]

NARRATIVE: CASE EVENT DATE: 20150728
